FAERS Safety Report 9424612 (Version 4)
Quarter: 2013Q3

REPORT INFORMATION
  Report Type: Spontaneous
  Country: ES (occurrence: ES)
  Receive Date: 20130729
  Receipt Date: 20130927
  Transmission Date: 20140515
  Serious: Yes (Death, Other)
  Sender: FDA-Public Use
  Company Number: ES-JNJFOC-20130711651

PATIENT
  Sex: Female

DRUGS (11)
  1. DOXORUBICIN [Suspect]
     Indication: BREAST CANCER
     Route: 042
  2. FARMIBLASTINA [Suspect]
     Indication: BREAST CANCER
     Route: 065
  3. PACLITAXEL [Suspect]
     Indication: BREAST CANCER
     Route: 065
  4. FLUOROURACIL [Suspect]
     Indication: BREAST CANCER
     Route: 065
  5. CYCLOPHOSPHAMIDE [Suspect]
     Indication: BREAST CANCER
     Route: 065
  6. RADIOTHERAPY [Concomitant]
     Indication: BREAST CANCER
     Route: 065
  7. TAMOXIFEN [Concomitant]
     Indication: ADJUVANT THERAPY
     Route: 065
  8. AROMATASE INHIBITORS [Concomitant]
     Indication: ADJUVANT THERAPY
     Route: 065
  9. ANTIEMETICS [Concomitant]
     Indication: PRODUCT USED FOR UNKNOWN INDICATION
     Route: 065
  10. CORTICOSTEROID [Concomitant]
     Indication: PRODUCT USED FOR UNKNOWN INDICATION
     Route: 065
  11. HISTAMINE RECEPTOR ANTAGONISTS [Concomitant]
     Indication: PRODUCT USED FOR UNKNOWN INDICATION
     Route: 065

REACTIONS (27)
  - Myocardial infarction [Fatal]
  - Arrhythmia [Fatal]
  - Neutropenia [Unknown]
  - Menstruation irregular [Unknown]
  - Amenorrhoea [Unknown]
  - Breast cancer recurrent [Unknown]
  - Breast cancer [Unknown]
  - Ovarian cancer [Unknown]
  - Leukaemia [Unknown]
  - Febrile neutropenia [Unknown]
  - Fatigue [Unknown]
  - Peripheral sensory neuropathy [Unknown]
  - Vomiting [Unknown]
  - Cardiac disorder [Unknown]
  - Arrhythmia [Unknown]
  - Lymphopenia [Unknown]
  - Infection [Unknown]
  - Transaminases increased [Unknown]
  - Mucosal inflammation [Unknown]
  - Myalgia [Unknown]
  - Nausea [Unknown]
  - Embolism [Unknown]
  - Thrombosis [Unknown]
  - Rash [Unknown]
  - Hypersensitivity [Unknown]
  - Dyspnoea [Unknown]
  - Treatment noncompliance [Unknown]
